FAERS Safety Report 13261957 (Version 2)
Quarter: 2017Q1

REPORT INFORMATION
  Report Type: Report from Study
  Country: US (occurrence: US)
  Receive Date: 20170222
  Receipt Date: 20170322
  Transmission Date: 20170428
  Serious: Yes (Death)
  Sender: FDA-Public Use
  Company Number: US-ACTELION-A-US2017-150167

PATIENT
  Age: 82 Year
  Sex: Male

DRUGS (8)
  1. REVATIO [Concomitant]
     Active Substance: SILDENAFIL CITRATE
     Dosage: 20 MG, UNK
  2. COQ10 [Concomitant]
     Active Substance: UBIDECARENONE
     Dosage: 100 MG, UNK
  3. CITALOPRAM [Concomitant]
     Active Substance: CITALOPRAM HYDROBROMIDE
     Dosage: 20 MG, UNK
     Route: 048
  4. XOPENEX HFA [Concomitant]
     Active Substance: LEVALBUTEROL TARTRATE
     Dosage: 45 MCG, (2 PUFFS) Q6HRS
     Route: 055
  5. OMEGA 3 [Concomitant]
     Active Substance: OMEGA-3 FATTY ACIDS
     Dosage: 1000 MG, UNK
  6. OPSUMIT [Suspect]
     Active Substance: MACITENTAN
     Indication: PULMONARY HYPERTENSION
     Dosage: 10 MG, UNK
     Route: 048
     Dates: start: 20151027, end: 20170202
  7. SYMBICORT [Concomitant]
     Active Substance: BUDESONIDE\FORMOTEROL FUMARATE DIHYDRATE
     Dosage: 160 MCG/4.5 MCG (2 PUFFS), QAM AND QPM
  8. TOLTERODINE [Concomitant]
     Active Substance: TOLTERODINE
     Dosage: 2 MG, BID
     Route: 048

REACTIONS (2)
  - Cardio-respiratory arrest [Fatal]
  - Acute respiratory failure [Fatal]
